FAERS Safety Report 8947144 (Version 1)
Quarter: 2012Q4

REPORT INFORMATION
  Report Type: 
  Country: US (occurrence: US)
  Receive Date: 20121205
  Receipt Date: 20121205
  Transmission Date: 20130627
  Serious: No
  Sender: FDA-Public Use
  Company Number: US-PFIZER INC-2012305003

PATIENT
  Sex: Female

DRUGS (2)
  1. LYRICA [Suspect]
     Indication: NEUROPATHY
     Dosage: 150 mg (three capsules of 50mg), daily
     Route: 048
  2. LYRICA [Suspect]
     Dosage: one capsule of 50mg and 25mg daily

REACTIONS (1)
  - Drug intolerance [Unknown]
